FAERS Safety Report 6063352-5 (Version None)
Quarter: 2009Q1

REPORT INFORMATION
  Report Type: 
  Country: None (occurrence: None)
  Receive Date: 20090203
  Receipt Date: 20090122
  Transmission Date: 20090719
  Serious: Yes (Other)
  Sender: FDA-Public Use
  Company Number: PT-AMGEN-US330460

PATIENT
  Sex: Female
  Weight: 52 kg

DRUGS (2)
  1. ENBREL [Suspect]
     Indication: DRUG USE FOR UNKNOWN INDICATION
     Route: 058
     Dates: start: 20090121
  2. NIMESULIDE [Concomitant]
     Dosage: 12/12 H
     Route: 048

REACTIONS (2)
  - CHEST PAIN [None]
  - HYPOAESTHESIA [None]
